FAERS Safety Report 5379402-5 (Version None)
Quarter: 2007Q3

REPORT INFORMATION
  Report Type: 
  Country: None (occurrence: None)
  Receive Date: 20070703
  Receipt Date: 20070620
  Transmission Date: 20080115
  Serious: Yes (Death, Hospitalization)
  Sender: FDA-Public Use
  Company Number: 2007S1005519

PATIENT
  Age: 80 Year
  Sex: Female

DRUGS (9)
  1. FENTANYL TRANSDERMAL SYSTEM [Suspect]
     Indication: PAIN IN EXTREMITY
     Dosage: 50 UG/HR; EVERY 3 DAYS; TRANSDERMAL
     Route: 062
     Dates: start: 20070527, end: 20070529
  2. FUROSEMIDE (CON.) [Concomitant]
  3. OMEPRAZOLE (CON.) [Concomitant]
  4. WARFARIN SODIUM (CON.) [Concomitant]
  5. LORAZEPAM (CON.) [Concomitant]
  6. DILTIAZEM HYDROCHLORIDE (CON.) [Concomitant]
  7. PAROXETINE HYDROCHLORIDE (CON.) [Concomitant]
  8. LATANOPROST (CON.) [Concomitant]
  9. IPRATROPIUM BRMIDE (CON.) [Concomitant]

REACTIONS (15)
  - ASTHENIA [None]
  - ATRIAL FIBRILLATION [None]
  - BACK PAIN [None]
  - CHEST PAIN [None]
  - DEHYDRATION [None]
  - GAIT DISTURBANCE [None]
  - JOINT SWELLING [None]
  - LETHARGY [None]
  - MOVEMENT DISORDER [None]
  - OEDEMA PERIPHERAL [None]
  - PHARYNGEAL CANCER METASTATIC [None]
  - RENAL FAILURE [None]
  - RESTLESSNESS [None]
  - SEPSIS [None]
  - SOMNOLENCE [None]
